FAERS Safety Report 12095045 (Version 1)
Quarter: 2016Q1

REPORT INFORMATION
  Report Type: Spontaneous
  Country: US (occurrence: US)
  Receive Date: 20160219
  Receipt Date: 20160219
  Transmission Date: 20160526
  Serious: Yes (Other)
  Sender: FDA-Public Use
  Company Number: US-SA-2016SA032778

PATIENT
  Age: 64 Year
  Sex: Female

DRUGS (10)
  1. NAMENDA [Concomitant]
     Active Substance: MEMANTINE HYDROCHLORIDE
  2. NUVIGIL [Concomitant]
     Active Substance: ARMODAFINIL
  3. AUBAGIO [Suspect]
     Active Substance: TERIFLUNOMIDE
     Indication: MULTIPLE SCLEROSIS
     Route: 048
  4. GRALISE [Concomitant]
     Active Substance: GABAPENTIN
  5. COUMADIN [Concomitant]
     Active Substance: WARFARIN SODIUM
  6. BACLOFEN. [Concomitant]
     Active Substance: BACLOFEN
  7. CELEBREX [Concomitant]
     Active Substance: CELECOXIB
  8. GABAPENTIN. [Concomitant]
     Active Substance: GABAPENTIN
  9. AMPYRA [Concomitant]
     Active Substance: DALFAMPRIDINE
  10. TOPROL XL [Concomitant]
     Active Substance: METOPROLOL SUCCINATE

REACTIONS (2)
  - Staphylococcal infection [Unknown]
  - Upper respiratory tract infection [Unknown]
